FAERS Safety Report 6768889-9 (Version None)
Quarter: 2010Q2

REPORT INFORMATION
  Report Type: 
  Country: None (occurrence: None)
  Receive Date: 20100611
  Receipt Date: 20100601
  Transmission Date: 20101027
  Serious: Yes (Hospitalization, Other)
  Sender: FDA-Public Use
  Company Number: 20108339

PATIENT
  Age: 21 Year
  Sex: Male
  Weight: 55 kg

DRUGS (6)
  1. BACLOFEN [Suspect]
     Indication: MUSCLE SPASTICITY
     Dosage: MCG, DAILY, INTRATHECAL
     Route: 037
  2. ULCERLMIN [Concomitant]
  3. ENTERONON R [Concomitant]
  4. NORVASC [Concomitant]
  5. GASTER D [Concomitant]
  6. DEPAKENE [Concomitant]

REACTIONS (2)
  - PYREXIA [None]
  - SHUNT INFECTION [None]
